FAERS Safety Report 11723296 (Version 1)
Quarter: 2015Q4

REPORT INFORMATION
  Report Type: Spontaneous
  Country: CN (occurrence: CN)
  Receive Date: 20151111
  Receipt Date: 20151111
  Transmission Date: 20160304
  Serious: Yes (Hospitalization)
  Sender: FDA-Public Use
  Company Number: PHHY2015CN146991

PATIENT
  Age: 49 Year
  Sex: Female

DRUGS (3)
  1. BONEFOS [Concomitant]
     Active Substance: CLODRONATE DISODIUM
     Indication: METASTASES TO BONE
     Dosage: 2.4 G, QD
     Route: 048
     Dates: start: 201202, end: 201303
  2. NEXAVAR [Concomitant]
     Active Substance: SORAFENIB
     Indication: RENAL CANCER
     Route: 048
     Dates: start: 201102
  3. ZOMETA [Suspect]
     Active Substance: ZOLEDRONIC ACID
     Indication: RENAL CANCER
     Dosage: 4 MG, QMO
     Route: 042
     Dates: start: 201204, end: 201210

REACTIONS (8)
  - Ulcer [Recovered/Resolved]
  - Tooth disorder [Recovered/Resolved]
  - Fistula [Recovered/Resolved]
  - Osteonecrosis of jaw [Recovered/Resolved]
  - Bone swelling [Recovered/Resolved]
  - Pain in jaw [Recovered/Resolved]
  - Bloody discharge [Recovered/Resolved]
  - Swelling face [Recovered/Resolved]
